FAERS Safety Report 16304939 (Version 2)
Quarter: 2019Q2

REPORT INFORMATION
  Report Type: Spontaneous
  Country: US (occurrence: US)
  Receive Date: 20190513
  Receipt Date: 20190515
  Transmission Date: 20190711
  Serious: Yes (Death, Other)
  Sender: FDA-Public Use
  Company Number: US-PFIZER INC-2019198544

PATIENT
  Age: 44 Year
  Sex: Male

DRUGS (3)
  1. METHYLPREDNISOLONE SODIUM SUCCINATE. [Suspect]
     Active Substance: METHYLPREDNISOLONE SODIUM SUCCINATE
     Indication: PERICARDIAL EFFUSION
     Dosage: 1 G, UNK (AT 1545 H OF HIS THIRD DAY IN THE HOSPITAL, IN 250 ML OF DEXTROSE, 5%, IN WATER, OVER 2 H)
     Route: 042
     Dates: start: 1965
  2. METHYLPREDNISOLONE SODIUM SUCCINATE. [Suspect]
     Active Substance: METHYLPREDNISOLONE SODIUM SUCCINATE
     Indication: HYPERSENSITIVITY VASCULITIS
  3. DEXTROSE. [Concomitant]
     Active Substance: DEXTROSE
     Dosage: UNK (250 ML)
     Route: 042
     Dates: start: 1965

REACTIONS (1)
  - Cardiac arrest [Fatal]

NARRATIVE: CASE EVENT DATE: 1965
